FAERS Safety Report 7824523-8 (Version None)
Quarter: 2011Q4

REPORT INFORMATION
  Report Type: 
  Country: None (occurrence: None)
  Receive Date: 20111019
  Receipt Date: 20111006
  Transmission Date: 20120403
  Serious: Yes (Hospitalization)
  Sender: FDA-Public Use
  Company Number: US-BAYER-2011-014912

PATIENT
  Age: 26 Year
  Sex: Female
  Weight: 115.19 kg

DRUGS (1)
  1. YASMIN [Suspect]
     Indication: CONTRACEPTION
     Dosage: UNK
     Route: 048
     Dates: start: 20030203, end: 20090130

REACTIONS (2)
  - PAIN [None]
  - PULMONARY EMBOLISM [None]
